FAERS Safety Report 7357687-3 (Version None)
Quarter: 2011Q1

REPORT INFORMATION
  Report Type: 
  Country: None (occurrence: None)
  Receive Date: 20110307
  Receipt Date: 20100806
  Transmission Date: 20110831
  Serious: No
  Sender: FDA-Public Use
  Company Number: AEUSA201000288

PATIENT
  Sex: Male

DRUGS (3)
  1. PROLASTIN-C [Suspect]
     Indication: ALPHA-1 ANTI-TRYPSIN DEFICIENCY
     Dosage: IV
     Route: 042
  2. BENADRYL [Concomitant]
  3. PROLASTIN [Concomitant]

REACTIONS (3)
  - PRODUCTIVE COUGH [None]
  - ORAL HERPES [None]
  - SKIN HAEMORRHAGE [None]
